FAERS Safety Report 13330389 (Version 1)
Quarter: 2017Q1

REPORT INFORMATION
  Report Type: Spontaneous
  Country: US (occurrence: US)
  Receive Date: 20170314
  Receipt Date: 20170314
  Transmission Date: 20170428
  Serious: No
  Sender: FDA-Public Use
  Company Number: US-ASTRAZENECA-2017SE24882

PATIENT

DRUGS (1)
  1. NEXIUM [Suspect]
     Active Substance: ESOMEPRAZOLE MAGNESIUM
     Indication: HIATUS HERNIA
     Dosage: 40 MG
     Route: 048

REACTIONS (5)
  - Gastrooesophageal reflux disease [Unknown]
  - Product use issue [Unknown]
  - Hypophagia [Unknown]
  - Off label use [Unknown]
  - Gastrointestinal disorder [Unknown]
